FAERS Safety Report 7674153-6 (Version None)
Quarter: 2011Q3

REPORT INFORMATION
  Report Type: 
  Country: None (occurrence: None)
  Receive Date: 20110810
  Receipt Date: 20110801
  Transmission Date: 20111222
  Serious: Yes (Other)
  Sender: FDA-Public Use
  Company Number: US-JNJFOC-20110801798

PATIENT
  Sex: Female

DRUGS (8)
  1. DURAGESIC-100 [Suspect]
     Indication: PAIN
     Route: 062
  2. HYDROCHLOROTHIAZIDE [Concomitant]
     Indication: HYPERTENSION
     Route: 048
  3. TRAZODONE HCL [Concomitant]
     Indication: SLEEP DISORDER
     Route: 048
  4. KLONOPIN [Concomitant]
     Indication: DEPRESSION
     Route: 048
     Dates: end: 20110101
  5. OXYCODONE HCL [Concomitant]
     Indication: PAIN
     Route: 048
  6. PRISTIQ [Concomitant]
     Indication: DEPRESSION
     Route: 048
  7. ATENOLOL [Concomitant]
     Indication: HYPERTENSION
     Route: 048
  8. PRISTIQ [Concomitant]
     Route: 048
     Dates: end: 20110101

REACTIONS (3)
  - WRONG TECHNIQUE IN DRUG USAGE PROCESS [None]
  - DEPRESSION [None]
  - PRODUCT QUALITY ISSUE [None]
